FAERS Safety Report 10895979 (Version 8)
Quarter: 2020Q2

REPORT INFORMATION
  Report Type: Report from Study
  Country: CA (occurrence: CA)
  Receive Date: 20150308
  Receipt Date: 20200604
  Transmission Date: 20200713
  Serious: Yes (Hospitalization, Other)
  Sender: FDA-Public Use
  Company Number: PHHY2015CA024106

PATIENT
  Age: 76 Year
  Sex: Female

DRUGS (3)
  1. SANDOSTATIN LAR DEPOT [Suspect]
     Active Substance: OCTREOTIDE ACETATE
     Dosage: 30 MG, QMO
     Route: 030
     Dates: start: 20150415
  2. SANDOSTATIN LAR DEPOT [Suspect]
     Active Substance: OCTREOTIDE ACETATE
     Indication: GASTROINTESTINAL ANGIODYSPLASIA
     Dosage: 20 MG, QMO
     Route: 030
     Dates: start: 20100301
  3. SANDOSTATIN LAR DEPOT [Suspect]
     Active Substance: OCTREOTIDE ACETATE
     Dosage: 30 MG, QMO
     Route: 030

REACTIONS (20)
  - Product use in unapproved indication [Unknown]
  - Weight decreased [Unknown]
  - Anaemia [Unknown]
  - Blood pressure systolic increased [Unknown]
  - Abdominal pain upper [Unknown]
  - Faeces discoloured [Unknown]
  - Tumour rupture [Unknown]
  - Bronchitis [Recovering/Resolving]
  - Hepatic haemorrhage [Unknown]
  - Haematochezia [Unknown]
  - Breast pain [Unknown]
  - Rhinorrhoea [Unknown]
  - Gastric haemorrhage [Unknown]
  - Cough [Unknown]
  - Bloody discharge [Unknown]
  - Fatigue [Unknown]
  - Chest pain [Unknown]
  - Intestinal haemorrhage [Unknown]
  - Abdominal distension [Unknown]
  - Infection [Unknown]

NARRATIVE: CASE EVENT DATE: 201501
